FAERS Safety Report 21926020 (Version 4)
Quarter: 2023Q1

REPORT INFORMATION
  Report Type: Spontaneous
  Country: DE (occurrence: DE)
  Receive Date: 20230130
  Receipt Date: 20230322
  Transmission Date: 20230418
  Serious: Yes (Hospitalization)
  Sender: FDA-Public Use
  Company Number: DE-ASTPRD-AER-2023-002070

PATIENT
  Age: 78 Year
  Sex: Female

DRUGS (13)
  1. PADCEV [Suspect]
     Active Substance: ENFORTUMAB VEDOTIN-EJFV
     Indication: Transitional cell cancer of renal pelvis and ureter metastatic
     Dosage: 1.25 MG/KG (TOTAL DOSE:95MG), CYCLIC
     Route: 042
     Dates: start: 20221108
  2. PADCEV [Suspect]
     Active Substance: ENFORTUMAB VEDOTIN-EJFV
     Dosage: 1.25 MG/KG (TOTAL DOSE:95MG), CYCLIC
     Route: 042
     Dates: start: 20221115
  3. PADCEV [Suspect]
     Active Substance: ENFORTUMAB VEDOTIN-EJFV
     Dosage: 1.25 MG/KG (TOTAL DOSE:95MG), CYCLIC
     Route: 042
     Dates: start: 20221122
  4. PADCEV [Suspect]
     Active Substance: ENFORTUMAB VEDOTIN-EJFV
     Dosage: 1.25 MG/KG (TOTAL DOSE:90MG), CYCLIC
     Route: 042
     Dates: start: 20221216
  5. PADCEV [Suspect]
     Active Substance: ENFORTUMAB VEDOTIN-EJFV
     Dosage: 1.25 MG/KG (TOTAL DOSE:90MG), CYCLIC
     Route: 042
     Dates: start: 20221227
  6. PADCEV [Suspect]
     Active Substance: ENFORTUMAB VEDOTIN-EJFV
     Dosage: 1.25 MG/KG (TOTAL DOSE:90MG), CYCLIC
     Route: 042
     Dates: start: 20230103
  7. PADCEV [Suspect]
     Active Substance: ENFORTUMAB VEDOTIN-EJFV
     Dosage: 1 MG/KG (TOTAL DOSE:70MG), CYCLIC
     Route: 042
     Dates: start: 20230131
  8. PADCEV [Suspect]
     Active Substance: ENFORTUMAB VEDOTIN-EJFV
     Dosage: 1 MG/KG (TOTAL DOSE:70MG), CYCLIC
     Route: 042
     Dates: start: 20230207
  9. PADCEV [Suspect]
     Active Substance: ENFORTUMAB VEDOTIN-EJFV
     Dosage: 1 MG/KG (TOTAL DOSE:70MG), CYCLIC
     Route: 042
     Dates: start: 20230214
  10. ELIQUIS [Concomitant]
     Active Substance: APIXABAN
     Indication: Product used for unknown indication
     Route: 065
  11. CANDESARTAN [Concomitant]
     Active Substance: CANDESARTAN
     Indication: Product used for unknown indication
     Route: 065
  12. ALLOPURINOL [Concomitant]
     Active Substance: ALLOPURINOL
     Indication: Product used for unknown indication
     Route: 065
  13. ANASTROZOLE [Concomitant]
     Active Substance: ANASTROZOLE
     Indication: Product used for unknown indication
     Route: 065

REACTIONS (1)
  - Hyponatraemia [Unknown]
